FAERS Safety Report 23094792 (Version 1)
Quarter: 2023Q4

REPORT INFORMATION
  Report Type: Spontaneous
  Country: AU (occurrence: AU)
  Receive Date: 20231023
  Receipt Date: 20231023
  Transmission Date: 20240110
  Serious: Yes (Other)
  Sender: FDA-Public Use
  Company Number: AU-002147023-NVSC2023AU223709

PATIENT
  Sex: Male

DRUGS (12)
  1. OMALIZUMAB [Suspect]
     Active Substance: OMALIZUMAB
     Indication: Linear IgA disease
     Dosage: 1 DOSAGE FORM, QMO (4 WEEKLY)
     Route: 065
  2. OMALIZUMAB [Suspect]
     Active Substance: OMALIZUMAB
     Indication: Pemphigoid
  3. RITUXIMAB [Suspect]
     Active Substance: RITUXIMAB
     Indication: Linear IgA disease
     Dosage: 1 G (STAT AND 2WEEKS LATER)
     Route: 065
     Dates: start: 20221201, end: 20221215
  4. RITUXIMAB [Suspect]
     Active Substance: RITUXIMAB
     Indication: Pemphigoid
  5. DEXAMETHASONE [Suspect]
     Active Substance: DEXAMETHASONE
     Indication: Linear IgA disease
     Route: 065
     Dates: start: 20221006, end: 20221006
  6. DEXAMETHASONE [Suspect]
     Active Substance: DEXAMETHASONE
     Indication: Pemphigoid
  7. COLCHICINE [Suspect]
     Active Substance: COLCHICINE
     Indication: Linear IgA disease
     Dosage: 500 MG, BID
     Route: 065
     Dates: start: 20220405, end: 20230406
  8. COLCHICINE [Suspect]
     Active Substance: COLCHICINE
     Indication: Pemphigoid
  9. DAPSONE [Concomitant]
     Active Substance: DAPSONE
     Indication: Product used for unknown indication
     Dosage: 50 MG, BID
     Dates: start: 20211129
  10. DOXYCYCLINE [Concomitant]
     Active Substance: DOXYCYCLINE
     Indication: Product used for unknown indication
     Dosage: 100 MG, QD
     Dates: start: 20230125
  11. MYCOPHENOLATE MOFETIL [Concomitant]
     Active Substance: MYCOPHENOLATE MOFETIL
     Indication: Product used for unknown indication
     Dosage: 1 G, BID
     Dates: start: 20221006
  12. SULFASALAZINE [Concomitant]
     Active Substance: SULFASALAZINE
     Indication: Product used for unknown indication
     Dates: start: 20231006

REACTIONS (2)
  - Linear IgA disease [Unknown]
  - Blister [Unknown]
